FAERS Safety Report 9882320 (Version 4)
Quarter: 2015Q1

REPORT INFORMATION
  Report Type: Spontaneous
  Country: US (occurrence: US)
  Receive Date: 20140207
  Receipt Date: 20150324
  Transmission Date: 20150721
  Serious: Yes (Hospitalization, Other)
  Sender: FDA-Public Use
  Company Number: US-GLAXOSMITHKLINE-A1059046A

PATIENT
  Age: 73 Year
  Sex: Female

DRUGS (10)
  1. ADVAIR DISKUS [Suspect]
     Active Substance: FLUTICASONE PROPIONATE\SALMETEROL XINAFOATE
     Indication: ASTHMA
     Dosage: 1 PUFF(S), QD
     Route: 055
     Dates: start: 201211
  2. WATER PILL [Concomitant]
     Active Substance: UNSPECIFIED INGREDIENT
  3. ASPIRIN. [Concomitant]
     Active Substance: ASPIRIN
  4. VENTOLIN [Suspect]
     Active Substance: ALBUTEROL SULFATE
     Indication: CHRONIC OBSTRUCTIVE PULMONARY DISEASE
  5. ADVAIR DISKUS [Suspect]
     Active Substance: FLUTICASONE PROPIONATE\SALMETEROL XINAFOATE
     Indication: CHRONIC OBSTRUCTIVE PULMONARY DISEASE
     Dosage: 1 PUFF(S), BID
     Route: 055
  6. OXYGEN. [Concomitant]
     Active Substance: OXYGEN
  7. POTASSIUM [Concomitant]
     Active Substance: POTASSIUM
  8. ZOLOFT [Concomitant]
     Active Substance: SERTRALINE HYDROCHLORIDE
  9. VENTOLIN [Suspect]
     Active Substance: ALBUTEROL SULFATE
     Indication: ASTHMA
     Dosage: 1 PUFF AS REQUIRED
     Route: 055
     Dates: start: 201201
  10. LASIX [Concomitant]
     Active Substance: FUROSEMIDE

REACTIONS (11)
  - Off label use [Unknown]
  - Cough [Recovering/Resolving]
  - Amnesia [Recovering/Resolving]
  - Oxygen saturation decreased [Recovering/Resolving]
  - Dehydration [Recovering/Resolving]
  - Transient ischaemic attack [Recovering/Resolving]
  - Dyspnoea [Recovering/Resolving]
  - Lower respiratory tract infection [Recovering/Resolving]
  - Disorientation [Recovering/Resolving]
  - Underdose [Unknown]
  - Cyanosis [Recovering/Resolving]

NARRATIVE: CASE EVENT DATE: 20140115
